FAERS Safety Report 10957144 (Version 1)
Quarter: 2015Q1

REPORT INFORMATION
  Report Type: Spontaneous
  Country: FR (occurrence: FR)
  Receive Date: 20150326
  Receipt Date: 20150326
  Transmission Date: 20150721
  Serious: Yes (Hospitalization)
  Sender: FDA-Public Use
  Company Number: FR-SA-2015SA036045

PATIENT
  Age: 55 Year
  Sex: Female

DRUGS (8)
  1. ARAVA [Suspect]
     Active Substance: LEFLUNOMIDE
     Route: 065
     Dates: start: 20140916, end: 20140916
  2. BETAXOLOL [Concomitant]
     Active Substance: BETAXOLOL
     Dosage: 20MG
  3. NEO MERCAZOLE [Suspect]
     Active Substance: CARBIMAZOLE
     Route: 065
     Dates: start: 20140829, end: 20140916
  4. UVEDOSE [Concomitant]
     Active Substance: CHOLECALCIFEROL
     Dosage: 1 AMPOULE EVERY 3 MONTHS
  5. PANTOPRAZOLE [Concomitant]
     Active Substance: PANTOPRAZOLE SODIUM
     Dosage: 40MG
  6. VOLTARENE [Suspect]
     Active Substance: DICLOFENAC SODIUM
     Route: 065
     Dates: end: 20140616
  7. LERCANIDIPINE [Concomitant]
     Active Substance: LERCANIDIPINE
  8. ARAVA [Suspect]
     Active Substance: LEFLUNOMIDE
     Route: 065
     Dates: end: 20140916

REACTIONS (3)
  - Hyperlipidaemia [Recovered/Resolved]
  - Blood pressure increased [Recovered/Resolved]
  - Hepatitis [Recovered/Resolved]

NARRATIVE: CASE EVENT DATE: 20140916
